FAERS Safety Report 23247849 (Version 2)
Quarter: 2023Q4

REPORT INFORMATION
  Report Type: Report from Study
  Country: US (occurrence: US)
  Receive Date: 20231130
  Receipt Date: 20231215
  Transmission Date: 20240110
  Serious: Yes (Death, Hospitalization)
  Sender: FDA-Public Use
  Company Number: US-PARATEK PHARMACEUTICALS, INC.-2023PTK00449

PATIENT
  Sex: Male

DRUGS (2)
  1. NUZYRA [Suspect]
     Active Substance: OMADACYCLINE
     Indication: Mycobacterial infection
     Dosage: 300 MG, 1X/DAY
     Route: 048
     Dates: start: 202303, end: 2023
  2. NUZYRA [Suspect]
     Active Substance: OMADACYCLINE
     Indication: Osteomyelitis
     Dosage: 300 MG, 1X/DAY
     Route: 048
     Dates: start: 2023, end: 20231121

REACTIONS (4)
  - Death [Fatal]
  - Postoperative thrombosis [Fatal]
  - Infection [Recovered/Resolved]
  - Drug ineffective for unapproved indication [Recovered/Resolved]

NARRATIVE: CASE EVENT DATE: 20230101
